FAERS Safety Report 5190159-3 (Version None)
Quarter: 2006Q4

REPORT INFORMATION
  Report Type: 
  Country: None (occurrence: None)
  Receive Date: 20061222
  Receipt Date: 20061113
  Transmission Date: 20070319
  Serious: Yes (Death, Hospitalization)
  Sender: FDA-Public Use
  Company Number: US-BAYER-200616393BWH

PATIENT
  Age: 74 Year
  Sex: Male

DRUGS (4)
  1. NEXAVAR [Suspect]
     Indication: METASTATIC RENAL CELL CARCINOMA
     Dosage: TOTAL DAILY DOSE: 200 MG  UNIT DOSE: 200 MG
     Route: 048
     Dates: start: 20061110
  2. STEROIDS (NOS) [Concomitant]
  3. DECADRON [Concomitant]
     Route: 048
  4. PROTONIX [Concomitant]

REACTIONS (6)
  - BACTERIAL SEPSIS [None]
  - CANDIDIASIS [None]
  - DYSPNOEA [None]
  - LUDWIG ANGINA [None]
  - MULTI-ORGAN FAILURE [None]
  - PHARYNGOLARYNGEAL PAIN [None]
